FAERS Safety Report 14765341 (Version 4)
Quarter: 2018Q2

REPORT INFORMATION
  Report Type: Report from Study
  Country: CA (occurrence: CA)
  Receive Date: 20180416
  Receipt Date: 20180620
  Transmission Date: 20180711
  Serious: Yes (Hospitalization, Other)
  Sender: FDA-Public Use
  Company Number: CA-JNJFOC-20180413912

PATIENT
  Age: 52 Year
  Sex: Female
  Weight: 58.5 kg

DRUGS (4)
  1. STELARA [Suspect]
     Active Substance: USTEKINUMAB
     Indication: CROHN^S DISEASE
     Route: 042
     Dates: start: 20180314
  2. STELARA [Suspect]
     Active Substance: USTEKINUMAB
     Indication: CROHN^S DISEASE
     Route: 042
     Dates: start: 20180613
  3. STELARA [Suspect]
     Active Substance: USTEKINUMAB
     Indication: CROHN^S DISEASE
     Route: 042
  4. STELARA [Suspect]
     Active Substance: USTEKINUMAB
     Indication: CROHN^S DISEASE
     Route: 042
     Dates: start: 20180307

REACTIONS (6)
  - Subcutaneous abscess [Recovering/Resolving]
  - Off label use [Unknown]
  - Fistula [Not Recovered/Not Resolved]
  - Wound secretion [Not Recovered/Not Resolved]
  - Ileostomy [Unknown]
  - Product use issue [Unknown]

NARRATIVE: CASE EVENT DATE: 2018
